FAERS Safety Report 13207267 (Version 4)
Quarter: 2019Q2

REPORT INFORMATION
  Report Type: Spontaneous
  Country: US (occurrence: US)
  Receive Date: 20170209
  Receipt Date: 20190606
  Transmission Date: 20190711
  Serious: No
  Sender: FDA-Public Use
  Company Number: US-SA-2016SA233750

PATIENT
  Age: 65 Year
  Sex: Female

DRUGS (4)
  1. ALIROCUMAB PREFILLED PEN [Suspect]
     Active Substance: ALIROCUMAB
     Dosage: 75 MG,QOW
     Route: 058
     Dates: start: 201611
  2. PRALUENT [Suspect]
     Active Substance: ALIROCUMAB
     Dosage: 75 MG,QOW
     Route: 058
     Dates: start: 201611
  3. ALIROCUMAB PREFILLED PEN [Suspect]
     Active Substance: ALIROCUMAB
     Indication: TYPE IIA HYPERLIPIDAEMIA
     Dosage: 75 MG,QOW
     Route: 058
     Dates: start: 201610
  4. PRALUENT [Suspect]
     Active Substance: ALIROCUMAB
     Indication: TYPE IIA HYPERLIPIDAEMIA
     Dosage: 75 MG,QOW
     Route: 058
     Dates: start: 201610

REACTIONS (8)
  - Diarrhoea [Unknown]
  - Urinary tract infection [Unknown]
  - Injection site discolouration [Not Recovered/Not Resolved]
  - Peripheral coldness [Unknown]
  - Irritable bowel syndrome [Unknown]
  - Vomiting projectile [Unknown]
  - Abdominal pain upper [Unknown]
  - Injection site dryness [Unknown]
